FAERS Safety Report 7199261-8 (Version None)
Quarter: 2010Q4

REPORT INFORMATION
  Report Type: 
  Country: None (occurrence: None)
  Receive Date: 20101215
  Receipt Date: 20101201
  Transmission Date: 20110411
  Serious: Yes (Other)
  Sender: FDA-Public Use
  Company Number: AUR-APL-2010-03024

PATIENT
  Age: 13 Year
  Sex: Male
  Weight: 31.2 kg

DRUGS (6)
  1. RISPERIDONE [Suspect]
     Indication: ATTENTION DEFICIT/HYPERACTIVITY DISORDER
     Dosage: 0.25MG - BID - ORAL
     Route: 048
     Dates: start: 20060601
  2. RISPERIDONE [Suspect]
     Indication: AUTISM
     Dosage: 0.25MG - BID - ORAL
     Route: 048
     Dates: start: 20060601
  3. EQUASYM XL (METHYLPHENIDATE HCL) [Concomitant]
     Indication: ATTENTION DEFICIT/HYPERACTIVITY DISORDER
     Dosage: 50MG - OD - ORAL
     Route: 048
     Dates: start: 20060901
  4. EQUASYM XL (METHYLPHENIDATE HCL) [Concomitant]
     Indication: AUTISM
     Dosage: 50MG - OD - ORAL
     Route: 048
     Dates: start: 20060901
  5. PRED FORTE [Suspect]
     Dosage: - OCULAR
  6. VEXOL [Suspect]
     Dosage: - OCULAR
     Route: 048

REACTIONS (2)
  - BENIGN INTRACRANIAL HYPERTENSION [None]
  - EYE SWELLING [None]
